FAERS Safety Report 12276997 (Version 2)
Quarter: 2016Q2

REPORT INFORMATION
  Report Type: Spontaneous
  Country: BR (occurrence: BR)
  Receive Date: 20160418
  Receipt Date: 20160425
  Transmission Date: 20160815
  Serious: Yes (Hospitalization)
  Sender: FDA-Public Use
  Company Number: BR-PFIZER INC-2016212669

PATIENT
  Age: 49 Year
  Sex: Female

DRUGS (1)
  1. LYRICA [Suspect]
     Active Substance: PREGABALIN
     Indication: MORTON^S NEURALGIA
     Dosage: ONLY 1 CAPSULE
     Dates: start: 20160407, end: 20160407

REACTIONS (4)
  - Motor dysfunction [Recovering/Resolving]
  - Feeling abnormal [Unknown]
  - Speech disorder [Recovering/Resolving]
  - Feeling drunk [Recovering/Resolving]

NARRATIVE: CASE EVENT DATE: 20160407
